FAERS Safety Report 16848860 (Version 5)
Quarter: 2021Q2

REPORT INFORMATION
  Report Type: Spontaneous
  Country: US (occurrence: US)
  Receive Date: 20190925
  Receipt Date: 20210422
  Transmission Date: 20210716
  Serious: Yes (Death, Hospitalization, Other)
  Sender: FDA-Public Use
  Company Number: US-GILEAD-2019-0429575

PATIENT
  Age: 47 Year
  Sex: Female

DRUGS (8)
  1. SENSIPAR [Concomitant]
     Active Substance: CINACALCET HYDROCHLORIDE
  2. CATAPRES [Concomitant]
     Active Substance: CLONIDINE HYDROCHLORIDE
  3. VANCOMYCIN [Concomitant]
     Active Substance: VANCOMYCIN
  4. VIREAD [Suspect]
     Active Substance: TENOFOVIR DISOPROXIL FUMARATE
     Indication: HIV INFECTION
     Dosage: UNK
     Route: 048
     Dates: start: 2012, end: 20190506
  5. ACETAMINOPHEN. [Concomitant]
     Active Substance: ACETAMINOPHEN
  6. TRUVADA [Suspect]
     Active Substance: EMTRICITABINE\TENOFOVIR DISOPROXIL FUMARATE
     Indication: HIV INFECTION
     Dosage: UNK
     Route: 048
     Dates: start: 2012, end: 20190506
  7. COREG [Concomitant]
     Active Substance: CARVEDILOL
  8. LISINOPRIL. [Concomitant]
     Active Substance: LISINOPRIL

REACTIONS (10)
  - Renal failure [Fatal]
  - Chronic kidney disease [Fatal]
  - End stage renal disease [Fatal]
  - Anhedonia [Not Recovered/Not Resolved]
  - Economic problem [Not Recovered/Not Resolved]
  - Renal impairment [Not Recovered/Not Resolved]
  - Pain [Not Recovered/Not Resolved]
  - Anxiety [Not Recovered/Not Resolved]
  - Emotional distress [Not Recovered/Not Resolved]
  - Anaemia of chronic disease [Recovered/Resolved]

NARRATIVE: CASE EVENT DATE: 2012
